FAERS Safety Report 8433079-0 (Version None)
Quarter: 2012Q2

REPORT INFORMATION
  Report Type: 
  Country: None (occurrence: None)
  Receive Date: 20120613
  Receipt Date: 20120606
  Transmission Date: 20120825
  Serious: Yes (Hospitalization)
  Sender: FDA-Public Use
  Company Number: GB-TEVA-342331USA

PATIENT
  Sex: Male

DRUGS (3)
  1. THALIDOMIDE [Suspect]
  2. TREANDA [Suspect]
  3. DEXAMETHASONE [Suspect]

REACTIONS (1)
  - RESPIRATORY TRACT INFECTION [None]
